FAERS Safety Report 7414650-1 (Version None)
Quarter: 2011Q1

REPORT INFORMATION
  Report Type: 
  Country: None (occurrence: None)
  Receive Date: 20110301
  Receipt Date: 20100611
  Transmission Date: 20110831
  Serious: Yes (Hospitalization)
  Sender: FDA-Public Use
  Company Number: US-JNJFOC-20100503445

PATIENT
  Age: 22 Month
  Sex: Male
  Weight: 8.1647 kg

DRUGS (1)
  1. CONCENTRATED MOTRIN INFANTS DROPS [Suspect]
     Indication: ILL-DEFINED DISORDER
     Dosage: 1.25 ML, 1 IN 1 TOTAL, ORAL
     Route: 048
     Dates: start: 20100405, end: 20100405

REACTIONS (3)
  - HAEMATOCHEZIA [None]
  - PRODUCT QUALITY ISSUE [None]
  - HAEMATEMESIS [None]
